FAERS Safety Report 14837903 (Version 2)
Quarter: 2018Q2

REPORT INFORMATION
  Report Type: Spontaneous
  Country: US (occurrence: US)
  Receive Date: 20180502
  Receipt Date: 20180508
  Transmission Date: 20180711
  Serious: Yes (Other)
  Sender: FDA-Public Use
  Company Number: US-PFIZER INC-2018174555

PATIENT
  Age: 69 Year
  Sex: Female
  Weight: 65.77 kg

DRUGS (4)
  1. IBRANCE [Suspect]
     Active Substance: PALBOCICLIB
     Dosage: 125 MG, UNK
     Dates: start: 20180220
  2. IBRANCE [Suspect]
     Active Substance: PALBOCICLIB
     Dosage: UNK
     Dates: start: 20180409
  3. IBRANCE [Suspect]
     Active Substance: PALBOCICLIB
     Indication: BREAST CANCER METASTATIC
     Dosage: 125 MG (1 TABLET), CYCLIC (EVERY DAY FOR 3 WEEKS THEN OFF FOR A WEEK)
     Route: 048
     Dates: start: 201802
  4. ZYRTEC [Concomitant]
     Active Substance: CETIRIZINE HYDROCHLORIDE
     Indication: URTICARIA
     Dosage: 10 MG, 1X/DAY
     Route: 048

REACTIONS (9)
  - White blood cell count decreased [Unknown]
  - Epistaxis [Unknown]
  - Haematochezia [Unknown]
  - Pain [Unknown]
  - Weight decreased [Unknown]
  - Malaise [Unknown]
  - Full blood count decreased [Recovering/Resolving]
  - Anal incontinence [Unknown]
  - Pus in stool [Unknown]

NARRATIVE: CASE EVENT DATE: 2018
